FAERS Safety Report 6736100-0 (Version None)
Quarter: 2010Q2

REPORT INFORMATION
  Report Type: 
  Country: None (occurrence: None)
  Receive Date: 20100520
  Receipt Date: 20100520
  Transmission Date: 20101027
  Serious: No
  Sender: FDA-Public Use
  Company Number: None

PATIENT
  Age: 64 Year
  Sex: Male
  Weight: 76.2 kg

DRUGS (1)
  1. PIPERACILLIN/TAZOBACTAM [Suspect]
     Indication: INFECTION
     Dosage: 2.25 GM QID IV
     Route: 042
     Dates: start: 20100403, end: 20100412

REACTIONS (2)
  - NEUTROPENIA [None]
  - PYREXIA [None]
